FAERS Safety Report 17445659 (Version 1)
Quarter: 2020Q1

REPORT INFORMATION
  Report Type: Spontaneous
  Country: US (occurrence: US)
  Receive Date: 20200221
  Receipt Date: 20200221
  Transmission Date: 20200409
  Serious: Yes (Other)
  Sender: FDA-Public Use
  Company Number: US-PFIZER INC-2020065426

PATIENT
  Age: 6 Year
  Sex: Male

DRUGS (5)
  1. VINCRISTINE SULFATE. [Suspect]
     Active Substance: VINCRISTINE SULFATE
     Dosage: 1.5 MG/M2, CYCLIC (SINGLE DOSES, WERE ADMINISTERED EACH TIME)
  2. CISPLATIN. [Concomitant]
     Active Substance: CISPLATIN
     Indication: MEDULLOBLASTOMA
     Dosage: UNK, CYCLIC (TWO COURSES, 5 AND 3 MONTHS PRIOR TO THIS ADMISSION)
  3. ETOPOSIDE. [Concomitant]
     Active Substance: ETOPOSIDE
     Indication: MEDULLOBLASTOMA
     Dosage: UNK, CYCLIC  (TWO COURSES, 5 AND 3 MONTHS PRIOR TO THIS ADMISSION)
  4. CYCLOPHOSPHAMIDE. [Concomitant]
     Active Substance: CYCLOPHOSPHAMIDE
     Indication: MEDULLOBLASTOMA
     Dosage: UNK, CYCLIC (TWO COURSES, 2 MONTHS AND 3 WEEKS PRIOR TO THIS ADMISSION)
  5. VINCRISTINE SULFATE. [Suspect]
     Active Substance: VINCRISTINE SULFATE
     Indication: MEDULLOBLASTOMA
     Dosage: UNK, CYCLIC ( TWO COURSES 2 MONTHS AND 3 WEEKS PRIOR TO THIS ADMISSION)

REACTIONS (3)
  - Guillain-Barre syndrome [Unknown]
  - Demyelination [Unknown]
  - Neuropathy peripheral [Unknown]
